FAERS Safety Report 9251179 (Version 1)
Quarter: 2013Q1

REPORT INFORMATION
  Report Type: Spontaneous
  Country: US (occurrence: None)
  Receive Date: 20130305
  Receipt Date: 20130305
  Transmission Date: 20140127
  Serious: Yes (Other)
  Sender: FDA-Public Use
  Company Number: 163-21880-12071943

PATIENT
  Age: 63 Year
  Sex: Male
  Weight: 79.38 kg

DRUGS (10)
  1. REVLIMID [Suspect]
     Indication: PLASMA CELL MYELOMA
     Dosage: 21 IN 28 D
     Route: 048
     Dates: start: 20120327
  2. DEXAMETHASONE [Concomitant]
  3. AMLODOPINE (AMLODIPINE) [Concomitant]
  4. CALTRATE (CALCIUM CARBONATE) [Concomitant]
  5. DOANS (DOANS PILLS) [Concomitant]
  6. MAGNESIUM [Concomitant]
  7. METOPROLOL [Concomitant]
  8. MULTIVITAMINS [Concomitant]
  9. NAPROXEN SODIUM [Concomitant]
  10. AMOXICILLIN [Concomitant]

REACTIONS (1)
  - Tooth infection [None]
